FAERS Safety Report 23180165 (Version 1)
Quarter: 2023Q4

REPORT INFORMATION
  Report Type: Report from Study
  Country: US (occurrence: US)
  Receive Date: 20231114
  Receipt Date: 20231114
  Transmission Date: 20240109
  Serious: Yes (Other)
  Sender: FDA-Public Use
  Company Number: US-ABBVIE-5489545

PATIENT
  Age: 83 Year
  Sex: Female

DRUGS (1)
  1. IMBRUVICA [Suspect]
     Active Substance: IBRUTINIB
     Indication: Chronic lymphocytic leukaemia
     Route: 048
     Dates: start: 201707

REACTIONS (5)
  - Hip arthroplasty [Unknown]
  - Fall [Unknown]
  - Pain [Recovering/Resolving]
  - Foot fracture [Unknown]
  - Head injury [Unknown]

NARRATIVE: CASE EVENT DATE: 20231001
